FAERS Safety Report 24341539 (Version 1)
Quarter: 2024Q3

REPORT INFORMATION
  Report Type: Spontaneous
  Country: FR (occurrence: FR)
  Receive Date: 20240920
  Receipt Date: 20240920
  Transmission Date: 20241016
  Serious: Yes (Hospitalization)
  Sender: ACCORD
  Company Number: None

PATIENT
  Age: 59 Year
  Sex: Female
  Weight: 57.5 kg

DRUGS (9)
  1. CARBOPLATIN [Suspect]
     Active Substance: CARBOPLATIN
     Indication: Papillary serous endometrial carcinoma
     Dosage: AUC 5
     Dates: start: 20240418, end: 20240527
  2. PACLITAXEL [Suspect]
     Active Substance: PACLITAXEL
     Indication: Papillary serous endometrial carcinoma
     Dosage: 175 MG/M2
     Dates: start: 20240418, end: 20240527
  3. DOSTARLIMAB [Concomitant]
     Active Substance: DOSTARLIMAB
     Indication: Papillary serous endometrial carcinoma
     Dates: start: 20240418, end: 20240418
  4. ONDANSETRON [Concomitant]
     Active Substance: ONDANSETRON
     Indication: Prophylaxis of nausea and vomiting
     Dates: start: 20240418, end: 20240418
  5. EMEND [Concomitant]
     Active Substance: APREPITANT
     Indication: Prophylaxis of nausea and vomiting
     Dates: start: 20240419, end: 20240420
  6. PEGFILGRASTIM [Concomitant]
     Active Substance: PEGFILGRASTIM
     Indication: Colony stimulating factor therapy
     Dosage: STRENGTH: 6MG, SOLUTION FOR INJECTION IN PRE-FILLED SYRINGE
     Dates: start: 20240419, end: 20240419
  7. SOLUPRED [Concomitant]
     Indication: Product used for unknown indication
     Dates: start: 20240419, end: 20240420
  8. SOLUPRED [Concomitant]
     Indication: Product used for unknown indication
     Dates: start: 20240421, end: 20240421
  9. EMEND [Concomitant]
     Active Substance: APREPITANT
     Indication: Prophylaxis of nausea and vomiting
     Dates: start: 20240418, end: 20240418

REACTIONS (3)
  - Rash maculo-papular [Recovering/Resolving]
  - Arthralgia [Recovered/Resolved]
  - Pyrexia [Recovered/Resolved]

NARRATIVE: CASE EVENT DATE: 20240419
